FAERS Safety Report 7034345-6 (Version None)
Quarter: 2010Q4

REPORT INFORMATION
  Report Type: 
  Country: None (occurrence: None)
  Receive Date: 20101008
  Receipt Date: 20100924
  Transmission Date: 20110411
  Serious: Yes (Other)
  Sender: FDA-Public Use
  Company Number: PHHY2010NL63680

PATIENT
  Sex: Male

DRUGS (4)
  1. ZOMETA [Suspect]
     Dosage: 4 MG, PER 5 ML
     Dates: start: 20100723
  2. ZOMETA [Suspect]
     Dosage: 4 MG, PER 5 ML
     Dates: start: 20100903
  3. ZOMETA [Suspect]
     Dosage: 4 MG, PER 5 ML
     Dates: start: 20100924
  4. MORPHINE [Concomitant]

REACTIONS (3)
  - FATIGUE [None]
  - PAIN IN EXTREMITY [None]
  - THROMBOSIS [None]
